FAERS Safety Report 8612517-4 (Version None)
Quarter: 2012Q3

REPORT INFORMATION
  Report Type: 
  Country: None (occurrence: None)
  Receive Date: 20120822
  Receipt Date: 20111103
  Transmission Date: 20120928
  Serious: No
  Sender: FDA-Public Use
  Company Number: US-ASTRAZENECA-2011SE59403

PATIENT
  Sex: Male

DRUGS (4)
  1. SYMBICORT [Suspect]
     Dosage: 160/4.5 MCG, ONE  PUFF, TWO TIMES A DAY
     Route: 055
  2. ALBUTEROL [Concomitant]
  3. SYMBICORT [Suspect]
     Dosage: 160/4.5 MCG, TWO PUFFS, TWO TIMES A DAY
     Route: 055
  4. ATROVENT [Concomitant]

REACTIONS (6)
  - FEELING ABNORMAL [None]
  - OFF LABEL USE [None]
  - SKIN DISORDER [None]
  - DRY MOUTH [None]
  - ANXIETY [None]
  - DRUG DOSE OMISSION [None]
